FAERS Safety Report 6756943-7 (Version None)
Quarter: 2010Q2

REPORT INFORMATION
  Report Type: 
  Country: None (occurrence: None)
  Receive Date: 20100604
  Receipt Date: 20100524
  Transmission Date: 20101027
  Serious: Yes (Other)
  Sender: FDA-Public Use
  Company Number: IN-WATSON-2010-07223

PATIENT

DRUGS (3)
  1. ISONIAZID [Suspect]
     Indication: TUBERCULOSIS
     Dosage: 600 MG DAILY
  2. RIFAMPIN [Suspect]
     Indication: TUBERCULOSIS
     Dosage: 450 MG DAILY
  3. PYRAZINAMIDE [Suspect]
     Indication: TUBERCULOSIS
     Dosage: 1500 MG DAILY

REACTIONS (2)
  - PARADOXICAL DRUG REACTION [None]
  - SPLENIC ABSCESS [None]
